FAERS Safety Report 18020742 (Version 2)
Quarter: 2021Q1

REPORT INFORMATION
  Report Type: Other
  Country: US (occurrence: US)
  Receive Date: 20200714
  Receipt Date: 20210219
  Transmission Date: 20210419
  Serious: No
  Sender: FDA-Public Use
  Company Number: US-ROCHE-2634592

PATIENT
  Age: 45 Year
  Sex: Male

DRUGS (6)
  1. OCREVUS [Suspect]
     Active Substance: OCRELIZUMAB
     Dosage: DOSE ON DAY 1 AND DAY 15
     Route: 042
     Dates: start: 20200115
  2. OCREVUS [Suspect]
     Active Substance: OCRELIZUMAB
     Indication: RELAPSING MULTIPLE SCLEROSIS
     Dosage: INITIAL DOSE ON DAY 1 AND DAY 15
     Route: 042
     Dates: start: 20180417
  3. OCREVUS [Suspect]
     Active Substance: OCRELIZUMAB
     Route: 042
     Dates: start: 20181106
  4. OCREVUS [Suspect]
     Active Substance: OCRELIZUMAB
     Route: 042
     Dates: start: 20190611
  5. OCREVUS [Suspect]
     Active Substance: OCRELIZUMAB
     Dosage: INITIAL DOSE ON DAY 1 AND DAY 15
     Route: 042
     Dates: start: 20200106
  6. OCREVUS [Suspect]
     Active Substance: OCRELIZUMAB
     Dosage: DOSE ON DAY 1 AND DAY 15
     Route: 042
     Dates: start: 20180501

REACTIONS (3)
  - Off label use [Unknown]
  - Intentional product use issue [Unknown]
  - COVID-19 [Unknown]

NARRATIVE: CASE EVENT DATE: 20200622
